FAERS Safety Report 5859432-7 (Version None)
Quarter: 2008Q3

REPORT INFORMATION
  Report Type: 
  Country: None (occurrence: None)
  Receive Date: 20080826
  Receipt Date: 20080826
  Transmission Date: 20090109
  Serious: Yes (Life-Threatening, Hospitalization)
  Sender: FDA-Public Use
  Company Number: None

PATIENT
  Age: 53 Year
  Sex: Female

DRUGS (2)
  1. LITHIUM CARBONATE [Suspect]
  2. SYNTHROID [Suspect]

REACTIONS (9)
  - ANTIPSYCHOTIC DRUG LEVEL ABOVE THERAPEUTIC [None]
  - BRADYCARDIA [None]
  - DYSPNOEA [None]
  - HYPOTENSION [None]
  - HYPOTHYROIDISM [None]
  - HYPOXIA [None]
  - OEDEMA [None]
  - SYNCOPE [None]
  - THYROIDITIS [None]
